FAERS Safety Report 7545103-8 (Version None)
Quarter: 2011Q2

REPORT INFORMATION
  Report Type: 
  Country: None (occurrence: None)
  Receive Date: 20110610
  Receipt Date: 20110610
  Transmission Date: 20111010
  Serious: No
  Sender: FDA-Public Use
  Company Number: None

PATIENT
  Sex: Female
  Weight: 78.4723 kg

DRUGS (1)
  1. PRADAXA [Suspect]
     Indication: DRUG THERAPY CHANGED
     Dosage: 150MG 2XDAILY
     Dates: start: 20110309, end: 20110324

REACTIONS (3)
  - DIARRHOEA [None]
  - BLOOD PRESSURE SYSTOLIC INCREASED [None]
  - ABDOMINAL DISCOMFORT [None]
